FAERS Safety Report 11825781 (Version 1)
Quarter: 2015Q4

REPORT INFORMATION
  Report Type: Spontaneous
  Country: GB (occurrence: GB)
  Receive Date: 20151211
  Receipt Date: 20151211
  Transmission Date: 20160305
  Serious: Yes (Other)
  Sender: FDA-Public Use
  Company Number: GB-TEVA-614966ACC

PATIENT
  Age: 38 Year
  Sex: Female
  Weight: 48.98 kg

DRUGS (1)
  1. DOXYCYCLINE. [Suspect]
     Active Substance: DOXYCYCLINE
     Indication: UPPER RESPIRATORY TRACT INFECTION
     Dosage: 100MG TWICE ON FIRST DAY 100MG PER DAY FOR 6 DAYS 7 DAY COURSE
     Route: 048
     Dates: start: 20151112, end: 20151119

REACTIONS (3)
  - Nightmare [Recovering/Resolving]
  - Nasopharyngitis [Unknown]
  - Abnormal sleep-related event [Recovering/Resolving]

NARRATIVE: CASE EVENT DATE: 20151113
